FAERS Safety Report 9230682 (Version 1)
Quarter: 2013Q2

REPORT INFORMATION
  Report Type: Spontaneous
  Country: US (occurrence: US)
  Receive Date: 20130415
  Receipt Date: 20130415
  Transmission Date: 20140414
  Serious: No
  Sender: FDA-Public Use
  Company Number: US-009507513-1304USA005512

PATIENT
  Sex: 0

DRUGS (1)
  1. INTRONA [Suspect]
     Dosage: UNSPECIFIED DOSE THAT INCLUDED A ^5^ AND WAS TAKEN 3 TIMES PER WEEK
     Dates: start: 201209

REACTIONS (2)
  - Drug dose omission [Unknown]
  - Incorrect storage of drug [Unknown]
